FAERS Safety Report 21394636 (Version 1)
Quarter: 2022Q3

REPORT INFORMATION
  Report Type: Spontaneous
  Country: FR (occurrence: FR)
  Receive Date: 20220930
  Receipt Date: 20220930
  Transmission Date: 20221027
  Serious: Yes (Congenital Anomaly)
  Sender: FDA-Public Use
  Company Number: None

PATIENT
  Age: 0 Year
  Sex: Female
  Weight: 2.5 kg

DRUGS (2)
  1. CLONAZEPAM [Suspect]
     Active Substance: CLONAZEPAM
     Indication: Post-anoxic myoclonus
     Route: 064
     Dates: start: 20210528, end: 20220208
  2. PIRACETAM [Suspect]
     Active Substance: PIRACETAM
     Indication: Post-anoxic myoclonus
     Dosage: 800 MG, EVERY 12 HOUR
     Route: 064
     Dates: start: 20210528, end: 20220208

REACTIONS (2)
  - Foetal growth restriction [Not Recovered/Not Resolved]
  - Foetal exposure during pregnancy [Recovered/Resolved]

NARRATIVE: CASE EVENT DATE: 20210528
